FAERS Safety Report 9252202 (Version 1)
Quarter: 2013Q2

REPORT INFORMATION
  Report Type: Spontaneous
  Country: DE (occurrence: DE)
  Receive Date: 20130424
  Receipt Date: 20130424
  Transmission Date: 20140414
  Serious: Yes (Hospitalization)
  Sender: FDA-Public Use
  Company Number: GXKR2013DE001588

PATIENT
  Age: 63 Year
  Sex: Female
  Weight: 100 kg

DRUGS (8)
  1. METFORMIN [Suspect]
     Indication: TYPE 2 DIABETES MELLITUS
     Dosage: 1000 MG, BID
     Route: 048
     Dates: start: 20101201, end: 20110512
  2. ASS [Concomitant]
     Dosage: 100 MG, QD
     Route: 048
  3. RAMIPRIL [Concomitant]
     Dosage: 10 MG, QD
     Route: 048
  4. FUROSEMIDE [Concomitant]
     Dosage: 20 MG, QD
     Route: 048
  5. LOSARTAN HCT [Concomitant]
     Dosage: 1 DF, BID (1-0-1)
     Route: 048
  6. ALLOPURINOL [Concomitant]
     Dosage: 300 MG, QD
     Route: 048
  7. AMLODIPINE [Concomitant]
     Dosage: 10 MG, QD
     Route: 048
  8. DOXEPIN [Concomitant]
     Dosage: 25 MG, BID (1-0-1)

REACTIONS (3)
  - Renal failure acute [Recovered/Resolved]
  - Hyperkalaemia [Recovered/Resolved]
  - Lactic acidosis [Recovered/Resolved]
